FAERS Safety Report 5160779-0 (Version None)
Quarter: 2006Q4

REPORT INFORMATION
  Report Type: 
  Country: None (occurrence: None)
  Receive Date: 20061121
  Receipt Date: 20061108
  Transmission Date: 20070319
  Serious: Yes (Other)
  Sender: FDA-Public Use
  Company Number: 2006140319

PATIENT
  Age: 28 Year
  Sex: Male
  Weight: 79.3795 kg

DRUGS (1)
  1. VIAGRA [Suspect]
     Dates: start: 20061108

REACTIONS (3)
  - ERECTION INCREASED [None]
  - GENITAL PAIN [None]
  - SELF-MEDICATION [None]
